FAERS Safety Report 8586163-5 (Version None)
Quarter: 2012Q3

REPORT INFORMATION
  Report Type: 
  Country: None (occurrence: None)
  Receive Date: 20120810
  Receipt Date: 20120808
  Transmission Date: 20120928
  Serious: Yes (Hospitalization)
  Sender: FDA-Public Use
  Company Number: US-GLAXOSMITHKLINE-A0988817A

PATIENT
  Sex: Female

DRUGS (4)
  1. STEROIDS [Suspect]
     Indication: PRODUCT USED FOR UNKNOWN INDICATION
  2. FLUTICASONE PROPIONATE [Suspect]
     Indication: PRODUCT USED FOR UNKNOWN INDICATION
     Route: 065
  3. ALBUTEROL [Suspect]
     Indication: PRODUCT USED FOR UNKNOWN INDICATION
     Route: 065
  4. HEPARIN [Suspect]
     Indication: THROMBOSIS PROPHYLAXIS
     Route: 033

REACTIONS (2)
  - OSTEOPOROSIS [None]
  - MULTIPLE FRACTURES [None]
